FAERS Safety Report 23221090 (Version 3)
Quarter: 2024Q2

REPORT INFORMATION
  Report Type: Spontaneous
  Country: AU (occurrence: AU)
  Receive Date: 20231123
  Receipt Date: 20240425
  Transmission Date: 20240716
  Serious: Yes (Death, Disabling, Other)
  Sender: FDA-Public Use
  Company Number: AU-Korea IPSEN-2023-26009

PATIENT
  Age: 71 Year
  Sex: Male

DRUGS (9)
  1. CABOMETYX [Suspect]
     Active Substance: CABOZANTINIB S-MALATE
     Indication: Papillary thyroid cancer
     Dosage: 60 MG, QD
     Route: 048
     Dates: start: 20230818, end: 20231030
  2. CABOMETYX [Suspect]
     Active Substance: CABOZANTINIB S-MALATE
     Dosage: 40 MG, QD
     Route: 048
     Dates: start: 20231117
  3. TAPENTADOL [Concomitant]
     Active Substance: TAPENTADOL
     Indication: Pain
     Dosage: UNK
  4. LOPERAMIDE [Concomitant]
     Active Substance: LOPERAMIDE
     Indication: Diarrhoea
     Dosage: UNK
     Route: 048
  5. LOPERAMIDE [Concomitant]
     Active Substance: LOPERAMIDE
  6. ASPIRIN [Concomitant]
     Active Substance: ASPIRIN
     Dosage: 100 MG
     Dates: start: 202205
  7. ATORVASTATIN [Concomitant]
     Active Substance: ATORVASTATIN
     Dosage: 40 MG
     Dates: start: 202205
  8. RAMIPRIL [Concomitant]
     Active Substance: RAMIPRIL
     Indication: Hypertension
     Dosage: 10 MG
     Dates: start: 202205
  9. LEVOTHYROXINE [Concomitant]
     Active Substance: LEVOTHYROXINE\LEVOTHYROXINE SODIUM
     Dosage: 150 MG

REACTIONS (5)
  - Brain fog [Recovering/Resolving]
  - Thyroid cancer [Fatal]
  - Fatigue [Recovering/Resolving]
  - Decreased appetite [Recovering/Resolving]
  - Dysgeusia [Recovering/Resolving]
